FAERS Safety Report 23638423 (Version 1)
Quarter: 2024Q1

REPORT INFORMATION
  Report Type: Spontaneous
  Country: US (occurrence: US)
  Receive Date: 20240315
  Receipt Date: 20240315
  Transmission Date: 20240410
  Serious: Yes (Hospitalization)
  Sender: FDA-Public Use
  Company Number: US-GENERICUS, INC.-2024GNR00001

PATIENT
  Sex: Female

DRUGS (7)
  1. TOBRAMYCIN [Suspect]
     Active Substance: TOBRAMYCIN
     Indication: Congenital pulmonary airway malformation
     Dosage: 1 VIAL (300 MG) VIA NEBULIZER BID
  2. MONTELUKAST SODIUM [Concomitant]
     Active Substance: MONTELUKAST SODIUM
  3. VITAMINS [Concomitant]
     Active Substance: VITAMINS
  4. LIDOCAINE [Concomitant]
     Active Substance: LIDOCAINE
  5. PENTASA [Concomitant]
     Active Substance: MESALAMINE
  6. FLUOCINONIDE [Concomitant]
     Active Substance: FLUOCINONIDE
  7. OFLOXACIN [OFLOXACIN HYDROCHLORIDE] [Concomitant]

REACTIONS (2)
  - Pneumonia [Unknown]
  - Off label use [Not Recovered/Not Resolved]
